FAERS Safety Report 6470842-X (Version None)
Quarter: 2009Q4

REPORT INFORMATION
  Report Type: 
  Country: None (occurrence: None)
  Receive Date: 20091203
  Receipt Date: 20080428
  Transmission Date: 20100525
  Serious: No
  Sender: FDA-Public Use
  Company Number: US-ELI_LILLY_AND_COMPANY-US200801003290

PATIENT
  Sex: Male

DRUGS (9)
  1. BYETTA [Suspect]
     Dosage: 5 UG, UNKNOWN
     Route: 058
     Dates: start: 20071129, end: 20071228
  2. BYETTA [Suspect]
     Dosage: 10 UG, 2/D
     Route: 058
     Dates: start: 20071228, end: 20080111
  3. LISINOPRIL [Concomitant]
     Dosage: 10 MG, UNK
  4. FENOFIBRATE [Concomitant]
     Dosage: 200 MG, UNK
  5. NIASPAN [Concomitant]
     Dosage: 1000 MG, UNK
  6. ZOCOR [Concomitant]
     Dosage: 40 MG, UNK
  7. VIAGRA [Concomitant]
     Dosage: 25 MG, UNK
  8. NOVOLOG [Concomitant]
  9. TRICOR [Concomitant]
     Dosage: 145 MG, UNK

REACTIONS (2)
  - CHEST PAIN [None]
  - LIPASE INCREASED [None]
